FAERS Safety Report 15809685 (Version 3)
Quarter: 2019Q1

REPORT INFORMATION
  Report Type: Spontaneous
  Country: DE (occurrence: DE)
  Receive Date: 20190111
  Receipt Date: 20190124
  Transmission Date: 20190417
  Serious: Yes (Life-Threatening, Other)
  Sender: FDA-Public Use
  Company Number: DE-AMGEN-DEUSP2019001363

PATIENT
  Sex: Female

DRUGS (1)
  1. XGEVA [Suspect]
     Active Substance: DENOSUMAB
     Indication: METASTASES TO BONE
     Dosage: UNK
     Route: 065
     Dates: start: 2018

REACTIONS (1)
  - Enterocolitis haemorrhagic [Unknown]

NARRATIVE: CASE EVENT DATE: 2018
